FAERS Safety Report 6347010-5 (Version None)
Quarter: 2009Q3

REPORT INFORMATION
  Report Type: 
  Country: None (occurrence: None)
  Receive Date: 20090910
  Receipt Date: 20090904
  Transmission Date: 20100115
  Serious: Yes (Other)
  Sender: FDA-Public Use
  Company Number: US-TEVA-208389USA

PATIENT
  Sex: Female

DRUGS (10)
  1. CLOZAPINE [Suspect]
     Indication: SCHIZOAFFECTIVE DISORDER
     Route: 048
     Dates: start: 20051001
  2. CLOZAPINE [Suspect]
     Route: 048
     Dates: start: 20070101
  3. CLOZAPINE [Suspect]
     Indication: SCHIZOAFFECTIVE DISORDER
  4. METFORMIN HCL [Concomitant]
  5. GLIPIZIDE [Concomitant]
  6. MULTI-VITAMINS [Concomitant]
  7. ASPIRIN [Concomitant]
  8. FOLIC ACID [Concomitant]
  9. ARIPIPRAZOLE [Concomitant]
  10. CALCIUM [Concomitant]

REACTIONS (2)
  - CERVIX CARCINOMA STAGE I [None]
  - WHITE BLOOD CELL COUNT DECREASED [None]
